FAERS Safety Report 9773779 (Version 2)
Quarter: 2013Q4

REPORT INFORMATION
  Report Type: Spontaneous
  Country: US (occurrence: US)
  Receive Date: 20131219
  Receipt Date: 20131224
  Transmission Date: 20140711
  Serious: Yes (Death)
  Sender: FDA-Public Use
  Company Number: US-ROCHE-1322489

PATIENT
  Sex: Female

DRUGS (8)
  1. XELODA [Suspect]
     Indication: COLON CANCER
     Dosage: 3 TABLETS FOR 7 DAYS ON FOLLOWED BY 7 DAYS OFF
     Route: 048
     Dates: start: 20131109
  2. VITAMIN B12 [Concomitant]
  3. CELEBREX [Concomitant]
  4. ONDANSETRON [Concomitant]
  5. LEXAPRO [Concomitant]
  6. CLARITIN [Concomitant]
  7. ASPIRIN [Concomitant]
  8. MEGESTROL [Concomitant]

REACTIONS (1)
  - Post procedural sepsis [Fatal]
